FAERS Safety Report 4854437-7 (Version None)
Quarter: 2005Q4

REPORT INFORMATION
  Report Type: 
  Country: None (occurrence: None)
  Receive Date: 20051213
  Receipt Date: 20051123
  Transmission Date: 20060501
  Serious: Yes (Other)
  Sender: FDA-Public Use
  Company Number: CA200511002922

PATIENT
  Sex: Female

DRUGS (1)
  1. STRATTERA [Suspect]
     Dosage: 25 MG

REACTIONS (6)
  - ANAPHYLACTIC REACTION [None]
  - BLOOD GLUCOSE INCREASED [None]
  - BULIMIA NERVOSA [None]
  - DIPLOPIA [None]
  - UNEVALUABLE EVENT [None]
  - VISUAL DISTURBANCE [None]
